FAERS Safety Report 25380990 (Version 4)
Quarter: 2025Q3

REPORT INFORMATION
  Report Type: Spontaneous
  Country: US (occurrence: US)
  Receive Date: 20250530
  Receipt Date: 20250710
  Transmission Date: 20251020
  Serious: Yes (Life-Threatening, Other)
  Sender: VERTEX
  Company Number: US-VERTEX PHARMACEUTICALS-2025-008654

PATIENT
  Age: 42 Year
  Sex: Female

DRUGS (5)
  1. JOURNAVX [Suspect]
     Active Substance: SUZETRIGINE
     Indication: Pain
     Dosage: 50 MG, BID (Q12H)
     Route: 048
     Dates: start: 20250507, end: 20250521
  2. DECADRON [Suspect]
     Active Substance: DEXAMETHASONE
     Indication: Angioedema
     Dosage: ONE TIME DOSE IN EMERGENCY ROOM
     Route: 042
     Dates: start: 20250522, end: 20250522
  3. MOBIC [Concomitant]
     Active Substance: MELOXICAM
     Indication: Procedural pain
     Dates: start: 20250508, end: 20250521
  4. METHOCARBAMOL [Concomitant]
     Active Substance: METHOCARBAMOL
     Dates: start: 202505
  5. HYDROMORPHONE [Concomitant]
     Active Substance: HYDROMORPHONE
     Dates: start: 202505

REACTIONS (2)
  - Angioedema [Recovered/Resolved]
  - Seizure [Recovered/Resolved]

NARRATIVE: CASE EVENT DATE: 20250522
